FAERS Safety Report 10100985 (Version 3)
Quarter: 2014Q2

REPORT INFORMATION
  Report Type: Spontaneous
  Country: JP (occurrence: JP)
  Receive Date: 20140424
  Receipt Date: 20140624
  Transmission Date: 20141212
  Serious: Yes (Death, Other)
  Sender: FDA-Public Use
  Company Number: JP-PFIZER INC-2014111212

PATIENT
  Age: 62 Year
  Sex: Male
  Weight: 54 kg

DRUGS (25)
  1. CAMPTO [Suspect]
     Indication: PANCREATIC CARCINOMA
     Dosage: 100 MG, 1X/DAY (100 MG/BODY) (62.5 MG/M2)
     Route: 041
     Dates: start: 20131218, end: 20131218
  2. CAMPTO [Suspect]
     Dosage: 100 MG, 1X/DAY (100 MG/BODY)
     Route: 041
     Dates: start: 20140110, end: 20140110
  3. ELPLAT [Suspect]
     Indication: PANCREATIC CARCINOMA
     Dosage: 60 MG, 1X/DAY (60 MG/BODY) (37.5 MG/M2)
     Route: 041
     Dates: start: 20131218, end: 20131218
  4. ELPLAT [Suspect]
     Dosage: 60 MG, 1X/DAY (60 MG/BODY)
     Route: 041
     Dates: start: 20140110, end: 20140110
  5. 5-FU [Suspect]
     Indication: PANCREATIC CARCINOMA
     Dosage: 300 MG, 1X/DAY (300MG/BODY) (187.5 MG/M2)
     Route: 040
     Dates: start: 20131218, end: 20131218
  6. 5-FU [Suspect]
     Dosage: 2000 MG, ONCE IN 2 DAYS (2000 MG/BODY/D1-2) (1250 MG/M2/D1-2)
     Route: 041
     Dates: start: 20131218, end: 20131218
  7. 5-FU [Suspect]
     Dosage: 300 MG, 1X/DAY (300MG/BODY)
     Route: 040
     Dates: start: 20140110, end: 20140110
  8. 5-FU [Suspect]
     Dosage: 2000 MG, ONCE IN 2DAYS (2000 MG/BODY/D1-2)
     Route: 041
     Dates: start: 20140110, end: 20140110
  9. CALCIUM LEVOFOLINATE [Concomitant]
     Indication: PANCREATIC CARCINOMA
     Dosage: 150 MG/BODY (93.8 MG/M2)
     Route: 042
     Dates: start: 20131218, end: 20140110
  10. ALOXI [Concomitant]
     Dosage: UNK
     Route: 042
     Dates: start: 20131218, end: 20140110
  11. DECADRON [Concomitant]
     Dosage: UNK
     Route: 042
     Dates: start: 20131218, end: 20140112
  12. EMEND [Concomitant]
     Dosage: UNK
     Route: 048
     Dates: start: 20131218, end: 20140112
  13. FENTOS [Concomitant]
     Dosage: UNK
     Route: 062
     Dates: start: 20131218, end: 20140124
  14. LOPEMIN [Concomitant]
     Indication: DIARRHOEA
     Dosage: UNK
     Route: 048
     Dates: start: 20131218, end: 20140111
  15. CONTOMIN [Concomitant]
     Dosage: UNK
     Route: 048
     Dates: start: 20131218, end: 20131230
  16. GASTER [Concomitant]
     Dosage: UNK
     Route: 042
     Dates: start: 20131218, end: 20140126
  17. ROPION [Concomitant]
     Dosage: UNK
     Route: 042
     Dates: start: 20131221, end: 20140126
  18. TSUMURA SHAKUYAKUKANZOTO [Concomitant]
     Dosage: UNK
     Route: 048
     Dates: start: 20131221, end: 20140113
  19. HUMULIN R [Concomitant]
     Dosage: UNK
     Route: 058
     Dates: start: 20131228, end: 20140121
  20. NOVAMIN [Concomitant]
     Dosage: UNK
     Route: 048
     Dates: start: 20140108, end: 20140109
  21. SERENACE [Concomitant]
     Dosage: UNK
     Route: 042
     Dates: start: 20140111, end: 20140114
  22. ANPEC [Concomitant]
     Dosage: UNK
     Route: 054
     Dates: start: 20140122, end: 20140123
  23. FENTANYL [Concomitant]
     Dosage: UNK
     Route: 042
     Dates: start: 20131217, end: 20140125
  24. UNASYN [Concomitant]
     Dosage: UNK
     Dates: start: 20140115, end: 20140124
  25. RED BLOOD CELLS, CONCENTRATED [Concomitant]
     Dosage: UNK
     Dates: start: 20140117

REACTIONS (8)
  - Duodenal stenosis [Fatal]
  - Pneumonia [Fatal]
  - Gastrointestinal haemorrhage [Fatal]
  - Disease progression [Fatal]
  - Pancreatic carcinoma [Fatal]
  - Pancytopenia [Not Recovered/Not Resolved]
  - Diarrhoea [Recovering/Resolving]
  - Nausea [Unknown]
